FAERS Safety Report 19096971 (Version 5)
Quarter: 2022Q3

REPORT INFORMATION
  Report Type: Spontaneous
  Country: JP (occurrence: JP)
  Receive Date: 20210406
  Receipt Date: 20220714
  Transmission Date: 20221027
  Serious: Yes (Death, Other)
  Sender: FDA-Public Use
  Company Number: JP-GLAXOSMITHKLINE-JP2021JPN073462

PATIENT

DRUGS (9)
  1. MEPOLIZUMAB [Suspect]
     Active Substance: MEPOLIZUMAB
     Indication: Asthma
     Dosage: ONCE MONTHLY
     Route: 058
     Dates: start: 20200908, end: 20210302
  2. SERETIDE [Suspect]
     Active Substance: FLUTICASONE PROPIONATE\SALMETEROL XINAFOATE
     Indication: Asthma
     Dosage: 500 ?G, BID
     Route: 055
     Dates: start: 20150407, end: 20210309
  3. SULTANOL [Suspect]
     Active Substance: ALBUTEROL SULFATE
     Indication: Asthma
     Dosage: UNK, PRN
     Route: 055
     Dates: start: 20150407, end: 20210309
  4. ALBUTEROL [Suspect]
     Active Substance: ALBUTEROL
     Dosage: ONCE EVERY 2 WEEKS
     Route: 055
     Dates: start: 20150407
  5. THEOPHYLLINE SUSTAINED-RELEASE TABLETS [Concomitant]
     Indication: Asthma
     Dosage: 200 MG, BID
     Route: 048
     Dates: end: 20210309
  6. AMBROXOL HYDROCHLORIDE TABLETS [Concomitant]
     Indication: Asthma
     Dosage: 15 MG, TID
     Route: 048
     Dates: end: 20210309
  7. MONTELUKAST SODIUM [Concomitant]
     Active Substance: MONTELUKAST SODIUM
     Indication: Asthma
     Dosage: 10 MG, QD
     Route: 048
     Dates: end: 20210309
  8. AMINOPHYLLINE [Concomitant]
     Active Substance: AMINOPHYLLINE
     Dosage: UNK
     Route: 041
  9. HYALURONATE SODIUM [Concomitant]
     Active Substance: HYALURONATE SODIUM
     Indication: Osteoarthritis
     Dosage: ONCE MONTHLY
     Route: 014

REACTIONS (7)
  - Cardiac tamponade [Fatal]
  - Aortic dissection [Fatal]
  - Condition aggravated [Fatal]
  - Back pain [Not Recovered/Not Resolved]
  - Gait disturbance [Not Recovered/Not Resolved]
  - Prescribed overdose [Unknown]
  - Off label use [Unknown]

NARRATIVE: CASE EVENT DATE: 20180101
